FAERS Safety Report 23487712 (Version 1)
Quarter: 2024Q1

REPORT INFORMATION
  Report Type: Spontaneous
  Country: US (occurrence: US)
  Receive Date: 20240206
  Receipt Date: 20240206
  Transmission Date: 20240410
  Serious: No
  Sender: FDA-Public Use
  Company Number: US-MYLANLABS-2024M1006621

PATIENT
  Sex: Female
  Weight: 45.36 kg

DRUGS (2)
  1. TYRVAYA [Suspect]
     Active Substance: VARENICLINE TARTRATE
     Indication: Dry eye
     Dosage: UNK
     Route: 045
  2. TYRVAYA [Suspect]
     Active Substance: VARENICLINE TARTRATE
     Indication: Blepharitis

REACTIONS (5)
  - Malaise [Unknown]
  - Accidental exposure to product [Unknown]
  - Product packaging quantity issue [Unknown]
  - Device delivery system issue [Unknown]
  - Product quality issue [Unknown]
